FAERS Safety Report 8046339-2 (Version None)
Quarter: 2012Q1

REPORT INFORMATION
  Report Type: 
  Country: None (occurrence: None)
  Receive Date: 20120113
  Receipt Date: 20120111
  Transmission Date: 20120608
  Serious: Yes (Death, Life-Threatening, Hospitalization)
  Sender: FDA-Public Use
  Company Number: JP-ROCHE-1022491

PATIENT
  Sex: Male
  Weight: 68 kg

DRUGS (8)
  1. NEUART [Concomitant]
     Route: 042
     Dates: start: 20111123
  2. ACTEMRA [Suspect]
     Indication: CASTLEMAN'S DISEASE
     Route: 041
     Dates: start: 20111125, end: 20111125
  3. DEXAMETHASONE SODIUM PHOSPHATE [Concomitant]
     Route: 042
     Dates: start: 20111123
  4. MEROPEN (JAPAN) [Concomitant]
     Route: 042
     Dates: start: 20111123
  5. BIO-THREE [Concomitant]
     Route: 051
     Dates: start: 20111118
  6. URSO 250 [Concomitant]
     Route: 051
     Dates: start: 20111113
  7. DEXAMETHASONE [Suspect]
     Indication: CYTOKINE STORM
     Route: 041
     Dates: start: 20111117, end: 20111120
  8. MINOCYCLINE HCL [Concomitant]
     Indication: INFECTION
     Dosage: DOSAGE IS UNCERTAIN.
     Route: 042
     Dates: start: 20111026, end: 20110101

REACTIONS (2)
  - SHOCK HAEMORRHAGIC [None]
  - CYTOMEGALOVIRUS ENTEROCOLITIS [None]
